FAERS Safety Report 6726501-9 (Version None)
Quarter: 2010Q2

REPORT INFORMATION
  Report Type: 
  Country: None (occurrence: None)
  Receive Date: 20100514
  Receipt Date: 20100428
  Transmission Date: 20101027
  Serious: Yes (Hospitalization)
  Sender: FDA-Public Use
  Company Number: PHHY2010US11975

PATIENT
  Sex: Female
  Weight: 100.7 kg

DRUGS (12)
  1. EXJADE [Suspect]
     Indication: ACUTE MYELOID LEUKAEMIA
     Dosage: 2000 MG PER DAY
     Route: 048
     Dates: start: 20100106
  2. EXJADE [Suspect]
     Indication: IRON OVERLOAD
  3. EXJADE [Suspect]
     Indication: MALAISE
  4. EXJADE [Suspect]
     Indication: FATIGUE
  5. LEXAPRO [Concomitant]
  6. OMEPRAZOLE [Concomitant]
  7. DICLOFENAC [Concomitant]
     Dosage: UNK
  8. PROAIR HFA [Concomitant]
  9. SPIRIVA [Concomitant]
  10. QVAR 40 [Concomitant]
  11. INDOMETHACIN [Concomitant]
     Indication: ARTHRITIS
     Dosage: UNK
  12. CALCIUM W/VITAMIN D NOS [Concomitant]
     Indication: BONE DISORDER

REACTIONS (4)
  - DYSPNOEA [None]
  - GASTROINTESTINAL HAEMORRHAGE [None]
  - MALAISE [None]
  - VOMITING [None]
